FAERS Safety Report 23859365 (Version 1)
Quarter: 2024Q2

REPORT INFORMATION
  Report Type: Spontaneous
  Country: SE (occurrence: SE)
  Receive Date: 20240515
  Receipt Date: 20240515
  Transmission Date: 20240716
  Serious: Yes (Hospitalization)
  Sender: FDA-Public Use
  Company Number: None

PATIENT
  Age: 55 Year
  Sex: Female

DRUGS (2)
  1. ALPRAZOLAM [Suspect]
     Active Substance: ALPRAZOLAM
     Indication: Sedative therapy
     Dosage: 10-15 TABLETS, TOTAL
     Route: 065
     Dates: start: 20240429
  2. ZOPICLONE [Suspect]
     Active Substance: ZOPICLONE
     Indication: Sedative therapy
     Dosage: 10-15 TABLETS, TOTAL
     Route: 065
     Dates: start: 20240429

REACTIONS (5)
  - Intentional self-injury [Recovered/Resolved]
  - Tachycardia [Recovered/Resolved]
  - Toxicity to various agents [Recovered/Resolved]
  - Fatigue [Recovered/Resolved]
  - Overdose [Unknown]

NARRATIVE: CASE EVENT DATE: 20240429
